APPROVED DRUG PRODUCT: TESTOSTERONE PROPIONATE
Active Ingredient: TESTOSTERONE PROPIONATE
Strength: 50MG/ML
Dosage Form/Route: INJECTABLE;INJECTION
Application: A080188 | Product #002
Applicant: WATSON LABORATORIES INC
Approved: Approved Prior to Jan 1, 1982 | RLD: No | RS: No | Type: DISCN